FAERS Safety Report 6864766-3 (Version None)
Quarter: 2010Q3

REPORT INFORMATION
  Report Type: 
  Country: None (occurrence: None)
  Receive Date: 20100721
  Receipt Date: 20080331
  Transmission Date: 20110219
  Serious: No
  Sender: FDA-Public Use
  Company Number: US-PFIZER INC-2008029452

PATIENT
  Sex: Male
  Weight: 77.3 kg

DRUGS (6)
  1. CHANTIX [Suspect]
     Indication: SMOKING CESSATION THERAPY
     Route: 048
     Dates: start: 20080321, end: 20080325
  2. PROPRANOLOL [Concomitant]
  3. QUINAPRIL [Concomitant]
  4. ALL OTHER THERAPEUTIC PRODUCTS [Concomitant]
  5. LIPITOR [Concomitant]
  6. HUMALOG [Concomitant]

REACTIONS (1)
  - ANXIETY [None]
